FAERS Safety Report 9632065 (Version 2)
Quarter: 2014Q1

REPORT INFORMATION
  Report Type: Spontaneous
  Country: US (occurrence: US)
  Receive Date: 20131018
  Receipt Date: 20140130
  Transmission Date: 20141002
  Serious: Yes (Hospitalization)
  Sender: FDA-Public Use
  Company Number: US-BAYER-2013-126071

PATIENT
  Age: 38 Year
  Sex: Female
  Weight: 77.1 kg

DRUGS (5)
  1. MIRENA [Suspect]
     Indication: CONTRACEPTION
     Dosage: 20 MCG/24HR, CONT
     Route: 015
     Dates: start: 2010, end: 201205
  2. WELLBUTRIN [Concomitant]
  3. PROPRANOLOL [Concomitant]
  4. QUINAPRIL [Concomitant]
  5. LOESTRIN [Concomitant]

REACTIONS (5)
  - Uterine perforation [None]
  - Injury [None]
  - Back pain [None]
  - Abdominal pain [None]
  - Emotional distress [None]
